FAERS Safety Report 8292339-7 (Version None)
Quarter: 2012Q2

REPORT INFORMATION
  Report Type: 
  Country: None (occurrence: None)
  Receive Date: 20120417
  Receipt Date: 20120411
  Transmission Date: 20120825
  Serious: Yes (Congenital Anomaly)
  Sender: FDA-Public Use
  Company Number: US-GILEAD-2009-0024486

PATIENT
  Sex: Male

DRUGS (4)
  1. NORDETTE-28 [Concomitant]
     Indication: CONTRACEPTION
     Route: 064
     Dates: start: 20081003, end: 20090120
  2. FOLIC ACID [Concomitant]
     Route: 064
  3. MEBENDAZOLE [Concomitant]
     Route: 064
  4. TENOFOVIR DISOPROXIL FUMARATE [Suspect]
     Indication: PROPHYLAXIS AGAINST HIV INFECTION
     Dosage: UNK
     Route: 064
     Dates: start: 20081003, end: 20090120

REACTIONS (2)
  - BULLOUS IMPETIGO [None]
  - HYPOSPADIAS [None]
